FAERS Safety Report 17973036 (Version 1)
Quarter: 2020Q3

REPORT INFORMATION
  Report Type: Spontaneous
  Country: US (occurrence: US)
  Receive Date: 20200701
  Receipt Date: 20200701
  Transmission Date: 20201103
  Serious: No
  Sender: FDA-Public Use
  Company Number: None

PATIENT
  Age: 59 Year
  Sex: Male

DRUGS (8)
  1. OXYCODONE 30MG IMMEDIATE REL TABS [Concomitant]
     Route: 048
  2. PROAIR RESPICLICK ORAL PWD INH(200) [Concomitant]
     Route: 048
  3. BIKTARVY [Concomitant]
     Active Substance: BICTEGRAVIR SODIUM\EMTRICITABINE\TENOFOVIR ALAFENAMIDE FUMARATE
     Route: 048
  4. SERTRALINE [Concomitant]
     Active Substance: SERTRALINE HYDROCHLORIDE
     Route: 048
  5. BIKTARVY [Suspect]
     Active Substance: BICTEGRAVIR SODIUM\EMTRICITABINE\TENOFOVIR ALAFENAMIDE FUMARATE
     Indication: HIV INFECTION
     Route: 048
     Dates: start: 202003
  6. BUPROPION XL 150MG TABLETS (24 H) [Concomitant]
     Route: 048
  7. MELOXICAM 7.5MG TABLETS [Concomitant]
     Active Substance: MELOXICAM
     Route: 048
  8. GABAPENTIN 600MG TABLETS [Concomitant]
     Route: 048

REACTIONS (2)
  - Flatulence [None]
  - Abdominal pain upper [None]

NARRATIVE: CASE EVENT DATE: 20200701
